APPROVED DRUG PRODUCT: NORISODRINE AEROTROL
Active Ingredient: ISOPROTERENOL HYDROCHLORIDE
Strength: 0.25%
Dosage Form/Route: DISC;INHALATION
Application: N016814 | Product #001
Applicant: ABBOTT LABORATORIES PHARMACEUTICAL PRODUCTS DIV
Approved: Approved Prior to Jan 1, 1982 | RLD: No | RS: No | Type: DISCN